FAERS Safety Report 5904900-2 (Version None)
Quarter: 2008Q4

REPORT INFORMATION
  Report Type: 
  Country: None (occurrence: None)
  Receive Date: 20081001
  Receipt Date: 20080924
  Transmission Date: 20090506
  Serious: Yes (Other)
  Sender: FDA-Public Use
  Company Number: B0538507A

PATIENT
  Age: 73 Year
  Sex: Male

DRUGS (3)
  1. AUGMENTIN '125' [Suspect]
     Indication: WOUND
     Dosage: 625MG THREE TIMES PER DAY
     Route: 048
     Dates: start: 20080906, end: 20080913
  2. TEVETEN [Concomitant]
  3. FOLIC ACID [Concomitant]

REACTIONS (2)
  - DIARRHOEA [None]
  - HAEMORRHAGE [None]
